FAERS Safety Report 4660196-3 (Version None)
Quarter: 2005Q2

REPORT INFORMATION
  Report Type: 
  Country: None (occurrence: None)
  Receive Date: 20050512
  Receipt Date: 20041213
  Transmission Date: 20051028
  Serious: Yes (Other)
  Sender: FDA-Public Use
  Company Number: DE-NOVOPROD-241046

PATIENT
  Age: 11 Year
  Sex: Female
  Weight: 31 kg

DRUGS (2)
  1. NORDITROPIN [Suspect]
     Indication: GROWTH HORMONE DEFICIENCY
     Dosage: .5 MG, QD
     Route: 058
     Dates: start: 20020816
  2. NORDITROPIN [Suspect]
     Dosage: .8 MG, QD
     Route: 058

REACTIONS (2)
  - CONDITION AGGRAVATED [None]
  - CONVULSION [None]
